FAERS Safety Report 8201498-3 (Version None)
Quarter: 2012Q1

REPORT INFORMATION
  Report Type: 
  Country: None (occurrence: None)
  Receive Date: 20120312
  Receipt Date: 20120302
  Transmission Date: 20120608
  Serious: Yes (Other)
  Sender: FDA-Public Use
  Company Number: JP-ASTRAZENECA-2012SE15628

PATIENT
  Age: 61 Year
  Sex: Male
  Weight: 78 kg

DRUGS (2)
  1. SYMBICORT [Suspect]
     Indication: ASTHMA
     Dosage: 320 UG ONE INHALATION TWO TIMES A DAY
     Route: 055
     Dates: start: 20100921, end: 20101005
  2. MEPTIN [Concomitant]
     Indication: ASTHMA
     Route: 048
     Dates: end: 20101024

REACTIONS (2)
  - SYNCOPE [None]
  - SOMNOLENCE [None]
